FAERS Safety Report 10558286 (Version 1)
Quarter: 2014Q4

REPORT INFORMATION
  Report Type: Spontaneous
  Country: DE (occurrence: DE)
  Receive Date: 20141031
  Receipt Date: 20141031
  Transmission Date: 20150529
  Serious: Yes (Death, Other)
  Sender: FDA-Public Use
  Company Number: DE-TEVA-517954GER

PATIENT
  Age: 0 Year
  Sex: Female

DRUGS (1)
  1. VALPROINS?URE [Suspect]
     Active Substance: VALPROATE SODIUM
     Indication: EPILEPSY
     Dosage: 1500 MILLIGRAM DAILY;
     Route: 064

REACTIONS (5)
  - Pulmonary fibrosis [Fatal]
  - Lung disorder [Unknown]
  - Foetal exposure during pregnancy [Unknown]
  - Death [Fatal]
  - Pneumothorax [Unknown]
